FAERS Safety Report 6759698-5 (Version None)
Quarter: 2010Q2

REPORT INFORMATION
  Report Type: 
  Country: None (occurrence: None)
  Receive Date: 20100604
  Receipt Date: 20100520
  Transmission Date: 20101027
  Serious: Yes (Disabling, Other)
  Sender: FDA-Public Use
  Company Number: PHHY2010TR32672

PATIENT
  Age: 75 Year
  Sex: Female

DRUGS (2)
  1. VISUDYNE [Suspect]
     Indication: MACULAR DEGENERATION
     Dates: start: 20100506, end: 20100506
  2. ALTUZAN [Concomitant]

REACTIONS (2)
  - RETINAL OEDEMA [None]
  - VISUAL ACUITY REDUCED [None]
